FAERS Safety Report 11678302 (Version 1)
Quarter: 2015Q4

REPORT INFORMATION
  Report Type: Spontaneous
  Country: US (occurrence: US)
  Receive Date: 20151028
  Receipt Date: 20151028
  Transmission Date: 20160304
  Serious: Yes (Other)
  Sender: FDA-Public Use
  Company Number: PHHY2015US133009

PATIENT
  Age: 11 Year
  Sex: Male
  Weight: 63 kg

DRUGS (1)
  1. TRAMETINIB [Suspect]
     Active Substance: TRAMETINIB
     Indication: NEUROBLASTOMA
     Dosage: 2 MG, QD
     Route: 048

REACTIONS (4)
  - Pneumonia [Recovering/Resolving]
  - Ventricular hypokinesia [Recovering/Resolving]
  - Dyspnoea [Recovered/Resolved]
  - Left ventricular dysfunction [Recovering/Resolving]
